FAERS Safety Report 15595352 (Version 1)
Quarter: 2018Q4

REPORT INFORMATION
  Report Type: Report from Study
  Country: None (occurrence: TR)
  Receive Date: 20181107
  Receipt Date: 20181107
  Transmission Date: 20190205
  Serious: Yes (Hospitalization)
  Sender: FDA-Public Use
  Company Number: TR-ABBVIE-18S-161-2541515-00

PATIENT
  Age: 43 Year
  Sex: Male
  Weight: 75 kg

DRUGS (6)
  1. DOPADEX [Concomitant]
     Indication: PARKINSON^S DISEASE
     Route: 048
     Dates: start: 20181031
  2. DUODOPA [Suspect]
     Active Substance: CARBIDOPA\LEVODOPA
     Indication: PARKINSON^S DISEASE
     Dosage: MD: 7.00 ML,CD: 5.50 ML,ED: 1.00 ML
     Route: 050
     Dates: start: 20181030
  3. KETYA [Concomitant]
     Indication: PARKINSON^S DISEASE
     Route: 048
  4. MOTILIUM [Concomitant]
     Active Substance: DOMPERIDONE
     Indication: PROPHYLAXIS
     Route: 048
  5. MADOPAR HBS [Concomitant]
     Active Substance: BENSERAZIDE HYDROCHLORIDE\LEVODOPA
     Indication: PARKINSON^S DISEASE
     Route: 048
     Dates: end: 20181031
  6. CLONEX [Concomitant]
     Indication: PRODUCT USED FOR UNKNOWN INDICATION
     Route: 048

REACTIONS (1)
  - Dermatitis allergic [Not Recovered/Not Resolved]

NARRATIVE: CASE EVENT DATE: 20181030
